FAERS Safety Report 23529517 (Version 1)
Quarter: 2024Q1

REPORT INFORMATION
  Report Type: Report from Study
  Country: US (occurrence: US)
  Receive Date: 20240216
  Receipt Date: 20240216
  Transmission Date: 20240410
  Serious: Yes (Hospitalization)
  Sender: FDA-Public Use
  Company Number: US-LEO Pharma-366630

PATIENT
  Age: 64 Year
  Sex: Female

DRUGS (1)
  1. ADBRY [Suspect]
     Active Substance: TRALOKINUMAB-LDRM
     Indication: Dermatitis atopic
     Dates: start: 20230425, end: 202312

REACTIONS (7)
  - Respiratory syncytial virus infection [Unknown]
  - Headache [Unknown]
  - Cough [Unknown]
  - Influenza [Unknown]
  - Pain [Unknown]
  - Nasal congestion [Unknown]
  - Diarrhoea [Unknown]
